FAERS Safety Report 5084386-3 (Version None)
Quarter: 2006Q3

REPORT INFORMATION
  Report Type: 
  Country: None (occurrence: None)
  Receive Date: 20060821
  Receipt Date: 20060713
  Transmission Date: 20061208
  Serious: Yes (Hospitalization)
  Sender: FDA-Public Use
  Company Number: FR-BRISTOL-MYERS SQUIBB COMPANY-13442041

PATIENT
  Age: 59 Year
  Sex: Female

DRUGS (4)
  1. ENDOXAN [Suspect]
     Indication: BREAST CANCER
     Route: 042
     Dates: start: 20060210, end: 20060210
  2. FLUOROURACIL [Suspect]
     Indication: BREAST CANCER
     Route: 042
     Dates: start: 20060210, end: 20060210
  3. EPIRUBICIN [Suspect]
     Indication: BREAST CANCER
     Route: 042
     Dates: start: 20060210, end: 20060210
  4. CARDIOXANE [Suspect]
     Indication: BREAST CANCER
     Route: 042
     Dates: start: 20060210, end: 20060210

REACTIONS (4)
  - DIARRHOEA [None]
  - ENCEPHALOPATHY [None]
  - PANCYTOPENIA [None]
  - STOMATITIS [None]
